FAERS Safety Report 13917264 (Version 4)
Quarter: 2018Q1

REPORT INFORMATION
  Report Type: Report from Study
  Country: CN (occurrence: CN)
  Receive Date: 20170829
  Receipt Date: 20180222
  Transmission Date: 20180508
  Serious: Yes (Death, Hospitalization)
  Sender: FDA-Public Use
  Company Number: CN-AMGEN-CHNCT2017130531

PATIENT
  Age: 69 Year
  Sex: Male
  Weight: 59 kg

DRUGS (30)
  1. RECOMBINANT HUMAN ERYTHROPOIETIN [Concomitant]
     Active Substance: ERYTHROPOIETIN
     Dosage: 10000 IU, 10000 UNK, UNK
     Route: 058
     Dates: start: 20170513, end: 20170710
  2. THYMALFASIN [Concomitant]
     Active Substance: THYMALFASIN
     Dosage: 1.6 MG, UNK
     Route: 058
     Dates: start: 20170519, end: 20170615
  3. LANSOPRAZOLE. [Concomitant]
     Active Substance: LANSOPRAZOLE
     Dosage: 30 MG, UNK
     Route: 042
     Dates: start: 20170602, end: 20170603
  4. DEXAMETHASONE. [Suspect]
     Active Substance: DEXAMETHASONE
     Indication: PLASMA CELL MYELOMA
     Dosage: 20 MG, PER CHEMO REGIM
     Route: 042
     Dates: start: 20170512, end: 20170610
  5. FILGRASTIM [Concomitant]
     Active Substance: FILGRASTIM
     Dosage: 150 MUG, UNK
     Route: 058
     Dates: start: 20170515, end: 20170523
  6. NIFEDIPINE. [Concomitant]
     Active Substance: NIFEDIPINE
     Dosage: 30 MUG-30 MG, UNK
     Route: 048
     Dates: end: 20170519
  7. METOPROLOL TARTRATE. [Concomitant]
     Active Substance: METOPROLOL TARTRATE
     Dosage: 23.75-47.5 MG, UNK
     Route: 048
     Dates: start: 20170512, end: 20170529
  8. CLARITHROMYCIN. [Concomitant]
     Active Substance: CLARITHROMYCIN
     Dosage: 0.5 G, UNK
     Route: 048
     Dates: start: 20170617
  9. MECOBALAMIN [Concomitant]
     Active Substance: METHYLCOBALAMIN
     Dosage: 0.5 MG, UNK
     Route: 048
     Dates: end: 20170528
  10. VALACICLOVIR [Concomitant]
     Active Substance: VALACYCLOVIR HYDROCHLORIDE
     Dosage: 300 MG, UNK
     Route: 048
     Dates: start: 20170511, end: 20170616
  11. GLUTATHIONE [Concomitant]
     Active Substance: GLUTATHIONE
     Dosage: 1.8 G, UNK
     Route: 042
     Dates: start: 20170609, end: 20170609
  12. CARFILZOMIB [Suspect]
     Active Substance: CARFILZOMIB
     Indication: PLASMA CELL MYELOMA
     Dosage: 46 MG, PER CHEMO REGIM
     Route: 042
     Dates: start: 20170512, end: 20170610
  13. SODIUM CHLORIDE. [Concomitant]
     Active Substance: SODIUM CHLORIDE
     Dosage: 100-250 ML, UNK
     Route: 042
     Dates: start: 20170512, end: 20170610
  14. HUMAN ALBUMIN [Concomitant]
     Active Substance: ALBUMIN HUMAN
     Dosage: 50 ML, UNK
     Route: 042
     Dates: start: 20170513, end: 20170527
  15. POTASSIUM [Concomitant]
     Active Substance: POTASSIUM
     Dosage: 50 ML, UNK
     Route: 042
     Dates: start: 20170514, end: 20170514
  16. POTASSIUM CHLORIDE. [Concomitant]
     Active Substance: POTASSIUM CHLORIDE
     Dosage: 1-3 G, UNK
     Route: 048
     Dates: start: 20170514, end: 20170528
  17. CEFOPERAZONE SODIUM AND SULBACTAM SODIUM [Concomitant]
     Active Substance: CEFOPERAZONE SODIUM\SULBACTAM SODIUM
     Indication: INFECTION
     Dosage: 3 G, UNK
     Route: 042
     Dates: start: 20170517, end: 201707
  18. CALCIUM CARBONATE AND VITAMIN D [Concomitant]
     Active Substance: CALCIUM CARBONATE\VITAMIN D
     Dosage: 500 MG, 1 UNK, UNK
     Route: 048
     Dates: start: 20170517, end: 20170616
  19. CALCIUM CHLORIDE. [Concomitant]
     Active Substance: CALCIUM CHLORIDE
     Dosage: 10 ML, UNK
     Route: 042
     Dates: start: 20170515, end: 20170516
  20. SODIUM BICARBONATE. [Concomitant]
     Active Substance: SODIUM BICARBONATE
     Dosage: 0.1-1 G, UNK
     Route: 048
     Dates: start: 20170613, end: 20170616
  21. COBAMAMIDE [Concomitant]
     Active Substance: COBAMAMIDE
     Dosage: 3 MG, UNK
     Route: 042
     Dates: start: 20170609, end: 20170609
  22. RECOMBINANT HUMAN THROMBOPOIETIN [Concomitant]
     Active Substance: THROMBOPOIETIN
     Dosage: 1000 UNK, UNK
     Route: 058
     Dates: start: 20170523, end: 20170523
  23. KETOCID [Concomitant]
     Dosage: 2-3 UNK, UNK
     Route: 048
     Dates: start: 20170525, end: 201706
  24. BIAPENEM [Concomitant]
     Active Substance: BIAPENEM
     Dosage: 0.3 G, UNK
     Route: 042
     Dates: start: 20170516, end: 20170516
  25. CLOSTRIDIUM BUTYRICUM [Concomitant]
     Active Substance: CLOSTRIDIUM BUTYRICUM SPORES STRAIN M-55
     Dosage: 20-40 MG, UNK
     Route: 048
     Dates: start: 20170518, end: 201706
  26. PROMETHAZINE [Concomitant]
     Active Substance: PROMETHAZINE\PROMETHAZINE HYDROCHLORIDE
     Dosage: 12.5 MG, UNK
     Route: 058
     Dates: start: 20170523, end: 20170525
  27. ALPROSTADIL. [Concomitant]
     Active Substance: ALPROSTADIL
     Dosage: 10-20 MUG, UNK
     Route: 042
     Dates: start: 20170609, end: 20170707
  28. TROPISETRON [Concomitant]
     Active Substance: TROPISETRON
     Dosage: 5 MG, UNK
     Route: 042
     Dates: start: 20170609, end: 20170609
  29. TORASEMIDE [Concomitant]
     Active Substance: TORSEMIDE
     Dosage: 20 MG, UNK
     Route: 042
     Dates: start: 20170513, end: 20170524
  30. OMEPRAZOLE. [Concomitant]
     Active Substance: OMEPRAZOLE
     Dosage: 20 MG, UNK
     Route: 048
     Dates: start: 20170617, end: 2017

REACTIONS (3)
  - Plasma cell myeloma [Fatal]
  - Chronic kidney disease [Recovered/Resolved]
  - Lung infection [Recovered/Resolved]

NARRATIVE: CASE EVENT DATE: 20170702
